FAERS Safety Report 6617744-3 (Version None)
Quarter: 2010Q1

REPORT INFORMATION
  Report Type: 
  Country: None (occurrence: None)
  Receive Date: 20100308
  Receipt Date: 20100224
  Transmission Date: 20100710
  Serious: Yes (Hospitalization)
  Sender: FDA-Public Use
  Company Number: PHHY2010GB02239

PATIENT
  Sex: Female

DRUGS (12)
  1. CLOZARIL [Suspect]
     Indication: SCHIZOPHRENIA
     Dosage: 250 MG AND 300 MG (NOCTE)
     Route: 048
     Dates: start: 20000210
  2. VALPROATE SODIUM [Concomitant]
     Dosage: UNK
  3. SULPIRIDE [Concomitant]
     Dosage: 800 MG, QD
     Route: 048
  4. CITALOPRAM HYDROBROMIDE [Concomitant]
     Dosage: 16 MG, QD
     Route: 048
  5. ATORVASTATIN CALCIUM [Concomitant]
     Dosage: 10 MG, EVERY NIGHT
     Route: 048
  6. VALPROATE SODIUM [Concomitant]
     Dosage: 800 MG, BID
     Route: 048
  7. PROCYCLIDINE HYDROCHLORIDE 2MG TAB [Concomitant]
     Dosage: 5 MG, EVERY NIGHT
     Route: 048
  8. TRIHEXYPHENIDYL HCL [Concomitant]
     Dosage: 5 MG, TID
     Route: 048
  9. BECLOMETHASONE DIPROPIONATE [Concomitant]
     Dosage: 2 PUFFS, TWICE A DAY
  10. ACETAZOLAMIDE [Concomitant]
     Dosage: 250 MG, QD
     Route: 048
  11. SALBUTAMOL [Concomitant]
     Dosage: 5 MG, QD
  12. ATROVENT [Concomitant]
     Dosage: 0.5 MG, QD

REACTIONS (5)
  - ASTHMA [None]
  - HYPOXIA [None]
  - INFECTION [None]
  - LOWER RESPIRATORY TRACT INFECTION [None]
  - PNEUMONIA [None]
